FAERS Safety Report 9678589 (Version 2)
Quarter: 2013Q4

REPORT INFORMATION
  Report Type: Spontaneous
  Country: US (occurrence: US)
  Receive Date: 20131108
  Receipt Date: 20131108
  Transmission Date: 20140711
  Serious: No
  Sender: FDA-Public Use
  Company Number: US-BAXTER-2013BAX042254

PATIENT
  Age: 72 Year
  Sex: Male

DRUGS (6)
  1. DIANEAL LOW CALCIUM [Suspect]
     Indication: PERITONEAL DIALYSIS
     Route: 033
     Dates: start: 20130625
  2. DIANEAL LOW CALCIUM [Suspect]
     Route: 033
     Dates: start: 20130625
  3. DIANEAL LOW CALCIUM [Suspect]
     Indication: PERITONEAL DIALYSIS
     Route: 033
     Dates: start: 20130625
  4. DIANEAL LOW CALCIUM [Suspect]
     Route: 033
     Dates: start: 20130625
  5. TRIPHROCAPS [Concomitant]
     Indication: RENAL FAILURE CHRONIC
     Route: 048
     Dates: start: 2013
  6. CALCITRIOL [Concomitant]
     Indication: RENAL FAILURE CHRONIC
     Route: 048
     Dates: start: 2013

REACTIONS (1)
  - Acute sinusitis [Recovered/Resolved]
